FAERS Safety Report 9365164 (Version 1)
Quarter: 2013Q2

REPORT INFORMATION
  Report Type: Spontaneous
  Country: GB (occurrence: GB)
  Receive Date: 20130624
  Receipt Date: 20130624
  Transmission Date: 20140414
  Serious: Yes (Other)
  Sender: FDA-Public Use
  Company Number: PHHY2013GB060986

PATIENT
  Sex: Female

DRUGS (5)
  1. CO-CODAMOL [Suspect]
     Indication: ARTHRALGIA
     Dates: start: 20130604, end: 20130605
  2. NUROFEN [Concomitant]
  3. RAMIPRIL [Concomitant]
  4. DEXCEL-PHARMA OMEPRAZOLE [Concomitant]
  5. DILTIAZEM [Concomitant]

REACTIONS (3)
  - Tremor [Not Recovered/Not Resolved]
  - Thirst [Not Recovered/Not Resolved]
  - Decreased appetite [Not Recovered/Not Resolved]
